FAERS Safety Report 4782436-2 (Version None)
Quarter: 2005Q3

REPORT INFORMATION
  Report Type: 
  Country: None (occurrence: None)
  Receive Date: 20050929
  Receipt Date: 20041021
  Transmission Date: 20060218
  Serious: No
  Sender: FDA-Public Use
  Company Number: US-GLAXOSMITHKLINE-A0530798A

PATIENT

DRUGS (1)
  1. COREG [Suspect]
     Indication: HYPERTENSION
     Dosage: 625MG UNKNOWN
     Route: 048

REACTIONS (1)
  - INTERMITTENT CLAUDICATION [None]
